FAERS Safety Report 7525044-2 (Version None)
Quarter: 2011Q2

REPORT INFORMATION
  Report Type: 
  Country: None (occurrence: None)
  Receive Date: 20110606
  Receipt Date: 20110523
  Transmission Date: 20111010
  Serious: Yes (Other)
  Sender: FDA-Public Use
  Company Number: US-ELI_LILLY_AND_COMPANY-US201101005284

PATIENT
  Sex: Female

DRUGS (1)
  1. FORTEO [Suspect]
     Indication: OSTEOPOROSIS
     Dosage: 20 UG, QD
     Dates: start: 20110301, end: 20110401

REACTIONS (11)
  - CONVULSION [None]
  - HEADACHE [None]
  - MALAISE [None]
  - PAIN IN EXTREMITY [None]
  - ARTHRALGIA [None]
  - SPINAL CORD INJURY [None]
  - EYE OPERATION [None]
  - NEUROPATHY PERIPHERAL [None]
  - MEDICATION ERROR [None]
  - VOMITING [None]
  - SPINAL OSTEOARTHRITIS [None]
